FAERS Safety Report 4831070-4 (Version None)
Quarter: 2005Q4

REPORT INFORMATION
  Report Type: 
  Country: None (occurrence: None)
  Receive Date: 20051116
  Receipt Date: 20051116
  Transmission Date: 20060501
  Serious: No
  Sender: FDA-Public Use
  Company Number: None

PATIENT
  Age: 24 Year
  Sex: Female
  Weight: 108.8633 kg

DRUGS (1)
  1. TUBERCULIN PURIFIED PROTEIN (TB SKIN TEST) DERIVATIVE (MONTOUX) TUBERS [Suspect]
     Indication: TUBERCULIN TEST
     Dosage: 1CC /ID
     Route: 023

REACTIONS (6)
  - ABNORMAL BEHAVIOUR [None]
  - CYANOSIS [None]
  - MUSCULOSKELETAL STIFFNESS [None]
  - SNORING [None]
  - SOMNOLENCE [None]
  - TREMOR [None]
